FAERS Safety Report 21643699 (Version 1)
Quarter: 2022Q4

REPORT INFORMATION
  Report Type: Spontaneous
  Country: BE (occurrence: BE)
  Receive Date: 20221125
  Receipt Date: 20221125
  Transmission Date: 20230112
  Serious: Yes (Hospitalization, Other)
  Sender: FDA-Public Use
  Company Number: BE-PFIZER INC-2017522524

PATIENT
  Age: 59 Year
  Sex: Female

DRUGS (11)
  1. CISPLATIN [Suspect]
     Active Substance: CISPLATIN
     Indication: Lung adenocarcinoma
     Dosage: 75 MG, CYCLIC (3 CYCLES, COMBINATION CHEMOTHERAPY)
  2. CISPLATIN [Suspect]
     Active Substance: CISPLATIN
     Dosage: 75 MG/M2, CYCLIC (FOUR CYCLES, COMBINATION CHEMOTHERAPY)
  3. CISPLATIN [Suspect]
     Active Substance: CISPLATIN
     Dosage: 75 MG/M2, CYCLICAL
     Route: 065
  4. PEMETREXED [Suspect]
     Active Substance: PEMETREXED
     Indication: Lung adenocarcinoma
     Dosage: 500 MG/M2, CYCLIC (3 CYCLES COMBINATION CHEMOTHERAPY)
  5. PEMETREXED [Suspect]
     Active Substance: PEMETREXED
     Dosage: 500 MG/M2, CYCLIC (FOUR CYCLES COMBINATION CHEMOTHERAPY); MAINTENANCE THERAPY
  6. PEMETREXED [Suspect]
     Active Substance: PEMETREXED
     Dosage: 500 MG/M2, CYCLICAL
     Route: 065
  7. AMLODIPINE [Concomitant]
     Active Substance: AMLODIPINE BESYLATE
     Indication: Hypertension
     Dosage: 10 MG, UNK
  8. PERINDOPRIL [Concomitant]
     Active Substance: PERINDOPRIL
     Indication: Hypertension
     Dosage: 5 MG, UNK
  9. NEBIVOLOL [Concomitant]
     Active Substance: NEBIVOLOL
     Indication: Hypertension
     Dosage: 2.5 MG, UNK
  10. METHYLPREDNISOLONE [Concomitant]
     Active Substance: METHYLPREDNISOLONE
     Dosage: 24 MG, 2X/DAY (FOR 2 DAYS, STARTING 1 DAY BEFORE THE ADMINISTRATION OF PEMETREXED)
  11. METOCLOPRAMIDE [Concomitant]
     Active Substance: METOCLOPRAMIDE
     Indication: Supplementation therapy
     Dosage: UNK, AS NEEDED

REACTIONS (2)
  - Posterior reversible encephalopathy syndrome [Recovering/Resolving]
  - Skin abrasion [Recovering/Resolving]
